FAERS Safety Report 4448783-9 (Version None)
Quarter: 2004Q3

REPORT INFORMATION
  Report Type: 
  Country: None (occurrence: None)
  Receive Date: 20040909
  Receipt Date: 20040825
  Transmission Date: 20050211
  Serious: No
  Sender: FDA-Public Use
  Company Number: 04P-163-0264940-00

PATIENT
  Age: 36 Year
  Sex: Female

DRUGS (4)
  1. KALETRA [Suspect]
     Indication: HIV INFECTION
     Dosage: 3 CAPSULES, 2 IN 12 HR, PER ORAL
     Route: 048
     Dates: start: 20040401
  2. ZIDOVUDINE W/LAMIVUDINE [Concomitant]
  3. BACTRIM [Concomitant]
  4. ZITHROMAX [Concomitant]

REACTIONS (6)
  - ANTIPHOSPHOLIPID SYNDROME [None]
  - DRUG EXPOSURE DURING PREGNANCY [None]
  - MEDICATION ERROR [None]
  - PREMATURE LABOUR [None]
  - STILLBIRTH [None]
  - WEIGHT GAIN POOR [None]
